FAERS Safety Report 8955827 (Version 1)
Quarter: 2012Q4

REPORT INFORMATION
  Report Type: Spontaneous
  Country: DK (occurrence: None)
  Receive Date: 20121130
  Receipt Date: 20121130
  Transmission Date: 20130627
  Serious: Yes (Hospitalization)
  Sender: FDA-Public Use
  Company Number: 2012MA013619

PATIENT
  Age: 55 Year
  Sex: Female

DRUGS (5)
  1. MIRTAZAPINE [Suspect]
     Indication: DRUG USE FOR UNKNOWN INDICATION
     Route: 048
     Dates: start: 20120908, end: 20120910
  2. PANTORC [Concomitant]
  3. SEROQUEL [Concomitant]
  4. DEPAKIN [Concomitant]
  5. LITHIUM [Concomitant]

REACTIONS (1)
  - Unevaluable event [None]
